FAERS Safety Report 18397794 (Version 1)
Quarter: 2020Q4

REPORT INFORMATION
  Report Type: Spontaneous
  Country: US (occurrence: US)
  Receive Date: 20201019
  Receipt Date: 20201019
  Transmission Date: 20210114
  Serious: Yes (Life-Threatening, Hospitalization, Disabling, Other)
  Sender: FDA-Public Use
  Company Number: None

PATIENT
  Age: 76 Year
  Sex: Male

DRUGS (1)
  1. TEPROTUMUMAB. [Suspect]
     Active Substance: TEPROTUMUMAB
     Indication: ENDOCRINE OPHTHALMOPATHY
     Dosage: ?          OTHER FREQUENCY:EVERY 3 WEEKS;?
     Route: 041
     Dates: start: 20200519, end: 20200820

REACTIONS (13)
  - Personality disorder [None]
  - Behaviour disorder [None]
  - Disinhibition [None]
  - Neurovascular conflict [None]
  - Encephalopathy [None]
  - Delirium [None]
  - Mania [None]
  - Apraxia [None]
  - Affect lability [None]
  - Confusional state [None]
  - Disease progression [None]
  - Cognitive disorder [None]
  - Catatonia [None]

NARRATIVE: CASE EVENT DATE: 20200820
